FAERS Safety Report 20853812 (Version 1)
Quarter: 2022Q2

REPORT INFORMATION
  Report Type: Spontaneous
  Country: US (occurrence: None)
  Receive Date: 20220518
  Receipt Date: 20220518
  Transmission Date: 20220721
  Serious: Yes (Other)
  Sender: FDA-Public Use
  Company Number: None

PATIENT
  Age: 19 Year
  Sex: Female
  Weight: 57.6 kg

DRUGS (9)
  1. VYVANSE [Suspect]
     Active Substance: LISDEXAMFETAMINE DIMESYLATE
     Indication: Attention deficit hyperactivity disorder
     Dosage: OTHER QUANTITY : 1 CAPSULE(S);?
     Route: 048
     Dates: start: 20220516, end: 20220518
  2. VYVANSE [Suspect]
     Active Substance: LISDEXAMFETAMINE DIMESYLATE
     Indication: Attention deficit hyperactivity disorder
  3. Paxil ER 37.5mg [Concomitant]
  4. LORAZEPAM [Concomitant]
     Active Substance: LORAZEPAM
  5. adderall IR 10mg [Concomitant]
  6. VYVANSE [Concomitant]
     Active Substance: LISDEXAMFETAMINE DIMESYLATE
  7. Abilify 7.5mg [Concomitant]
  8. albuterol sulfate inhaler 90mcg 2x daily [Concomitant]
  9. cbd oil tincture [Concomitant]

REACTIONS (10)
  - Dry mouth [None]
  - Blood pressure increased [None]
  - Heart rate increased [None]
  - Cardiac murmur [None]
  - Hallucination [None]
  - Dizziness [None]
  - Photophobia [None]
  - Euphoric mood [None]
  - Mydriasis [None]
  - Urinary tract disorder [None]

NARRATIVE: CASE EVENT DATE: 20220518
